FAERS Safety Report 8274422-5 (Version None)
Quarter: 2012Q1

REPORT INFORMATION
  Report Type: 
  Country: None (occurrence: None)
  Receive Date: 20120309
  Receipt Date: 20110610
  Transmission Date: 20120608
  Serious: Yes (Other)
  Sender: FDA-Public Use
  Company Number: PHHY2011US51783

PATIENT
  Age: 40 Year
  Sex: Female

DRUGS (5)
  1. LISINOPRIL [Suspect]
  2. TEKTURNA HCT [Suspect]
     Dosage: 1 DF, QD
  3. BENICAR [Suspect]
  4. MONOPRIL [Suspect]
  5. ADVIL (MEFENAMIC ACID) [Concomitant]

REACTIONS (9)
  - HYPERSENSITIVITY [None]
  - DYSURIA [None]
  - VISION BLURRED [None]
  - BOWEL MOVEMENT IRREGULARITY [None]
  - INFLAMMATION [None]
  - ORAL PAIN [None]
  - DEHYDRATION [None]
  - APHASIA [None]
  - FEELING ABNORMAL [None]
